FAERS Safety Report 6641799-3 (Version None)
Quarter: 2010Q1

REPORT INFORMATION
  Report Type: 
  Country: None (occurrence: None)
  Receive Date: 20100315
  Receipt Date: 20100311
  Transmission Date: 20100710
  Serious: Yes (Hospitalization, Other)
  Sender: FDA-Public Use
  Company Number: ALL1-2010-01382

PATIENT
  Age: 38 Year
  Sex: Male
  Weight: 142.9 kg

DRUGS (1)
  1. FOSRENOL [Suspect]
     Indication: HYPERPHOSPHATAEMIA
     Dosage: ORAL
     Route: 048

REACTIONS (5)
  - BLOOD GLUCOSE DECREASED [None]
  - DIALYSIS [None]
  - MULTIPLE MYELOMA [None]
  - RENAL FAILURE [None]
  - WEIGHT FLUCTUATION [None]
